FAERS Safety Report 22238126 (Version 1)
Quarter: 2023Q2

REPORT INFORMATION
  Report Type: Spontaneous
  Country: CN (occurrence: CN)
  Receive Date: 20230421
  Receipt Date: 20230421
  Transmission Date: 20230721
  Serious: Yes (Other)
  Sender: FDA-Public Use
  Company Number: CN-009507513-2304CHN006286

PATIENT
  Sex: Female
  Weight: 60 kg

DRUGS (1)
  1. CILASTATIN SODIUM\IMIPENEM [Suspect]
     Active Substance: CILASTATIN SODIUM\IMIPENEM
     Indication: Interstitial lung disease
     Dosage: 1 GRAM, THREE TIMES A DAY (TID), INTRAVENOUS (IV) DRIP
     Route: 041
     Dates: start: 20230409, end: 20230410

REACTIONS (3)
  - Delirium [Recovering/Resolving]
  - Disorganised speech [Recovering/Resolving]
  - Restlessness [Recovering/Resolving]

NARRATIVE: CASE EVENT DATE: 20230410
